FAERS Safety Report 13229091 (Version 3)
Quarter: 2017Q1

REPORT INFORMATION
  Report Type: Report from Study
  Country: US (occurrence: US)
  Receive Date: 20170214
  Receipt Date: 20170316
  Transmission Date: 20170428
  Serious: Yes (Other)
  Sender: FDA-Public Use
  Company Number: US-BIOGEN-2016BI00312047

PATIENT
  Sex: Female

DRUGS (2)
  1. TECFIDERA [Suspect]
     Active Substance: DIMETHYL FUMARATE
     Route: 065
  2. TECFIDERA [Suspect]
     Active Substance: DIMETHYL FUMARATE
     Indication: MULTIPLE SCLEROSIS
     Route: 048
     Dates: start: 20160810

REACTIONS (7)
  - Cognitive disorder [Unknown]
  - Emotional distress [Unknown]
  - Dissociation [Not Recovered/Not Resolved]
  - Fear [Unknown]
  - Somnolence [Unknown]
  - Confusional state [Unknown]
  - Discomfort [Unknown]
